FAERS Safety Report 17983050 (Version 1)
Quarter: 2020Q3

REPORT INFORMATION
  Report Type: Spontaneous
  Country: US (occurrence: US)
  Receive Date: 20200706
  Receipt Date: 20200706
  Transmission Date: 20201103
  Serious: No
  Sender: FDA-Public Use
  Company Number: US-PFIZER INC-2020254733

PATIENT
  Age: 82 Year
  Sex: Female
  Weight: 66.67 kg

DRUGS (1)
  1. ZOSYN [Suspect]
     Active Substance: PIPERACILLIN SODIUM\TAZOBACTAM SODIUM
     Indication: URINARY TRACT INFECTION
     Dosage: UNK

REACTIONS (3)
  - Oral herpes [Recovering/Resolving]
  - Oral candidiasis [Recovering/Resolving]
  - Herpes virus infection [Recovering/Resolving]
